FAERS Safety Report 10932737 (Version 1)
Quarter: 2015Q1

REPORT INFORMATION
  Report Type: Spontaneous
  Country: US (occurrence: None)
  Receive Date: 20150319
  Receipt Date: 20150319
  Transmission Date: 20150721
  Serious: Yes (Hospitalization)
  Sender: FDA-Public Use
  Company Number: None

PATIENT
  Age: 54 Year
  Sex: Female
  Weight: 96.9 kg

DRUGS (1)
  1. XELODA [Suspect]
     Active Substance: CAPECITABINE
     Dates: end: 20141121

REACTIONS (5)
  - Cardiac arrest [None]
  - Pulmonary embolism [None]
  - Acute respiratory failure [None]
  - Deep vein thrombosis [None]
  - Myocardial strain [None]

NARRATIVE: CASE EVENT DATE: 20150116
